FAERS Safety Report 6833432-2 (Version None)
Quarter: 2010Q3

REPORT INFORMATION
  Report Type: 
  Country: None (occurrence: None)
  Receive Date: 20100712
  Receipt Date: 20070325
  Transmission Date: 20110219
  Serious: No
  Sender: FDA-Public Use
  Company Number: US-PFIZER INC-2007024742

PATIENT
  Sex: Female
  Weight: 67.13 kg

DRUGS (6)
  1. CHANTIX [Suspect]
     Indication: SMOKING CESSATION THERAPY
     Dates: start: 20070201
  2. WELLBUTRIN [Concomitant]
  3. LOVAZA [Concomitant]
  4. VITAMINS [Concomitant]
  5. BLACK COHOSH [Concomitant]
  6. CITRUCEL [Concomitant]

REACTIONS (1)
  - CONSTIPATION [None]
